FAERS Safety Report 7040498-6 (Version None)
Quarter: 2010Q4

REPORT INFORMATION
  Report Type: 
  Country: None (occurrence: None)
  Receive Date: 20101008
  Receipt Date: 20101008
  Transmission Date: 20110411
  Serious: Yes (Hospitalization)
  Sender: FDA-Public Use
  Company Number: None

PATIENT
  Age: 54 Year
  Sex: Female
  Weight: 81.6475 kg

DRUGS (2)
  1. VICTOZA [Suspect]
     Indication: DIABETES MELLITUS
     Dosage: 1.8 QDAY INJEC
     Dates: start: 20100701
  2. VICTOZA [Suspect]
     Indication: DIABETES MELLITUS
     Dosage: 1.8 QDAY INJEC
     Dates: start: 20100828

REACTIONS (5)
  - ABDOMINAL PAIN [None]
  - BACK PAIN [None]
  - CONSTIPATION [None]
  - LIPASE INCREASED [None]
  - SINUS TACHYCARDIA [None]
